FAERS Safety Report 13881937 (Version 2)
Quarter: 2017Q3

REPORT INFORMATION
  Report Type: Spontaneous
  Country: AT (occurrence: AT)
  Receive Date: 20170818
  Receipt Date: 20170829
  Transmission Date: 20171127
  Serious: Yes (Life-Threatening, Hospitalization)
  Sender: FDA-Public Use
  Company Number: AT-AMGEN-AUTSP2017124814

PATIENT
  Age: 78 Year
  Sex: Female

DRUGS (3)
  1. LEFLUNOMID [Suspect]
     Active Substance: LEFLUNOMIDE
     Indication: RHEUMATOID ARTHRITIS
     Dosage: 10 MG, UNK
     Route: 065
  2. ENBREL [Suspect]
     Active Substance: ETANERCEPT
     Indication: RHEUMATOID ARTHRITIS
     Dosage: 50 MG, WEEKLY
     Route: 065
     Dates: start: 2011
  3. ENBREL [Suspect]
     Active Substance: ETANERCEPT
     Dosage: 50 MG, EVERY 2 WEEKS
     Route: 065
     Dates: end: 201708

REACTIONS (8)
  - Escherichia infection [Recovering/Resolving]
  - Erysipelas [Recovering/Resolving]
  - Anuria [Recovering/Resolving]
  - Necrotising fasciitis [Recovering/Resolving]
  - Multiple organ dysfunction syndrome [Recovering/Resolving]
  - Beta haemolytic streptococcal infection [Recovering/Resolving]
  - Immunosuppression [Recovering/Resolving]
  - Blister [Recovering/Resolving]

NARRATIVE: CASE EVENT DATE: 201704
